FAERS Safety Report 12668788 (Version 3)
Quarter: 2016Q4

REPORT INFORMATION
  Report Type: Spontaneous
  Country: JP (occurrence: JP)
  Receive Date: 20160819
  Receipt Date: 20161021
  Transmission Date: 20170207
  Serious: Yes (Hospitalization)
  Sender: FDA-Public Use
  Company Number: JP-JNJFOC-20160814553

PATIENT
  Age: 40 Year
  Sex: Female
  Weight: 46 kg

DRUGS (6)
  1. TRESIBA [Suspect]
     Active Substance: INSULIN DEGLUDEC
     Indication: DIABETES MELLITUS
     Route: 051
     Dates: end: 201605
  2. TOSILART [Concomitant]
     Indication: DIABETES MELLITUS
     Route: 048
     Dates: end: 20160702
  3. TRESIBA [Suspect]
     Active Substance: INSULIN DEGLUDEC
     Indication: DIABETES MELLITUS
     Route: 051
  4. CANAGLU [Suspect]
     Active Substance: CANAGLIFLOZIN
     Indication: TYPE 1 DIABETES MELLITUS
     Route: 048
     Dates: end: 20160727
  5. NOVORAPID [Concomitant]
     Active Substance: INSULIN ASPART
     Dosage: DOSE: 0-5-4-0
     Route: 065
     Dates: end: 201605
  6. METFORMIN [Concomitant]
     Active Substance: METFORMIN HYDROCHLORIDE
     Indication: DIABETES MELLITUS
     Route: 048
     Dates: end: 20160727

REACTIONS (5)
  - Weight decreased [Unknown]
  - Off label use [Unknown]
  - Bacterial infection [Unknown]
  - Diabetic ketoacidosis [Recovering/Resolving]
  - Product use issue [Unknown]

NARRATIVE: CASE EVENT DATE: 20160727
